FAERS Safety Report 9056895 (Version 1)
Quarter: 2013Q1

REPORT INFORMATION
  Report Type: Report from Study
  Country: US (occurrence: US)
  Receive Date: 20130201
  Receipt Date: 20130201
  Transmission Date: 20140127
  Serious: Yes (Hospitalization, Other)
  Sender: FDA-Public Use
  Company Number: US-ACTELION-A-NJ2009-29054

PATIENT
  Age: 63 Year
  Sex: Female
  Weight: 129.3 kg

DRUGS (18)
  1. TRACLEER [Suspect]
     Indication: PULMONARY ARTERIAL HYPERTENSION
     Dosage: 62.5 MG, BID
     Route: 048
     Dates: start: 20090829
  2. TRACLEER [Suspect]
     Dosage: UNK
     Route: 048
  3. FUROSEMIDE [Concomitant]
  4. KLOR-CON [Concomitant]
  5. METHOTREXATE [Concomitant]
  6. LISINOPRIL [Concomitant]
  7. SIMVASTATIN [Concomitant]
  8. SPIRIVA [Concomitant]
  9. ADVAIR [Concomitant]
  10. METFORMIN [Concomitant]
  11. OXYGEN [Concomitant]
  12. MAXAIR [Concomitant]
  13. RANITIDINE [Concomitant]
  14. SALSALATE [Concomitant]
  15. SULFASALAZINE [Concomitant]
  16. ACETAMINOPHEN W/HYDROCODONE [Concomitant]
  17. CALTRATE [Concomitant]
  18. ATROPINE SULFATE W/DIPHENOXYLATE HYDROCHLOR. [Concomitant]

REACTIONS (12)
  - Tracheostomy malfunction [Unknown]
  - Oedema [Recovering/Resolving]
  - Fluid retention [Unknown]
  - Respiratory failure [Unknown]
  - Hypoxia [Unknown]
  - Dyspnoea [Unknown]
  - Tracheostomy [Unknown]
  - Mechanical ventilation [Unknown]
  - Lobar pneumonia [Unknown]
  - Cardiac failure congestive [Unknown]
  - Pulmonary hypertension [Unknown]
  - Drug dose omission [Unknown]
